FAERS Safety Report 5192578-8 (Version None)
Quarter: 2006Q4

REPORT INFORMATION
  Report Type: 
  Country: None (occurrence: None)
  Receive Date: 20061220
  Receipt Date: 20061211
  Transmission Date: 20070319
  Serious: Yes (Other)
  Sender: FDA-Public Use
  Company Number: 2006SP007504

PATIENT
  Age: 41 Year
  Sex: Female

DRUGS (4)
  1. PEG-INTRON [Suspect]
     Indication: HEPATITIS C
     Dosage: SC
     Route: 058
     Dates: start: 20061127
  2. RIBAVIRIN [Suspect]
     Indication: HEPATITIS C
     Dosage: PO
     Route: 048
     Dates: start: 20061127
  3. CELEBREX [Concomitant]
  4. NORCO [Concomitant]

REACTIONS (7)
  - BACK PAIN [None]
  - CONVULSION [None]
  - DEHYDRATION [None]
  - INFLUENZA LIKE ILLNESS [None]
  - MUSCLE SPASMS [None]
  - PAIN [None]
  - VOMITING [None]
